FAERS Safety Report 6120314-7 (Version None)
Quarter: 2009Q1

REPORT INFORMATION
  Report Type: 
  Country: None (occurrence: None)
  Receive Date: 20090312
  Receipt Date: 20090227
  Transmission Date: 20090719
  Serious: Yes (Other)
  Sender: FDA-Public Use
  Company Number: B0563711A

PATIENT
  Age: 27 Year
  Sex: Female

DRUGS (2)
  1. ADVAIR HFA [Suspect]
     Indication: ASTHMA
  2. KALETRA [Suspect]
     Indication: HIV INFECTION

REACTIONS (2)
  - CUSHING'S SYNDROME [None]
  - WEIGHT INCREASED [None]
